FAERS Safety Report 4971882-X (Version None)
Quarter: 2006Q2

REPORT INFORMATION
  Report Type: 
  Country: None (occurrence: None)
  Receive Date: 20060413
  Receipt Date: 20051026
  Transmission Date: 20061013
  Serious: Yes (Hospitalization)
  Sender: FDA-Public Use
  Company Number: US-MERCK-0510USA09714

PATIENT
  Sex: Female
  Weight: 100 kg

DRUGS (2)
  1. VIOXX [Suspect]
     Indication: BACK DISORDER
     Route: 048
     Dates: start: 20020101
  2. VIOXX [Suspect]
     Route: 065
     Dates: start: 20020101

REACTIONS (8)
  - ABDOMINAL SYMPTOM [None]
  - ANGINA PECTORIS [None]
  - ANXIETY [None]
  - CARDIOVASCULAR DISORDER [None]
  - CEREBROVASCULAR ACCIDENT [None]
  - DEPRESSION [None]
  - EMOTIONAL DISORDER [None]
  - LOWER LIMB FRACTURE [None]
